FAERS Safety Report 8166903-X (Version None)
Quarter: 2012Q1

REPORT INFORMATION
  Report Type: 
  Country: None (occurrence: None)
  Receive Date: 20120227
  Receipt Date: 20120213
  Transmission Date: 20120608
  Serious: Yes (Hospitalization)
  Sender: FDA-Public Use
  Company Number: DE-UCBSA-050371

PATIENT
  Sex: Male
  Weight: 82 kg

DRUGS (13)
  1. DIGITOXIN TAB [Suspect]
     Dosage: STRENGTH: 0.07 MG ; DAILY DOSE:1
  2. BISOPROLOL FUMARATE [Suspect]
     Dosage: STRENGTH: 5 MG ; DAILY DOSE: 1/2
  3. PRAMIPEXOLE DIHYDROCHLORIDE [Concomitant]
     Indication: RESTLESS LEGS SYNDROME
     Dosage: DAILY DOSE:1, 0,88
     Dates: end: 20111110
  4. PRAMIPEXOLE DIHYDROCHLORIDE [Concomitant]
     Dosage: DAILY DOSE: 1? ; LONG TERM MEDICATION 0,35
     Dates: start: 20111101
  5. MARKUMAR [Concomitant]
     Dosage: STRENGTH: 3 MG ; ACCORDING TO PLAN
  6. DEXIBUPROFEN [Suspect]
     Dosage: STRENGTH: 400 MG ; DAILY DOSE:1
  7. RESTEX [Concomitant]
     Indication: RESTLESS LEGS SYNDROME
  8. FUROSEMIDE [Concomitant]
     Dosage: STRENGTH: 40 ; DAILY DOSE:1
  9. TAMZUNAL [Concomitant]
     Dosage: DAILY DOSE:1, 0,4
  10. PANTOPRAZOLE [Concomitant]
     Dosage: STRENGTH: 40 MG ; DAILY DOSE:1
  11. NEUPRO [Suspect]
     Indication: RESTLESS LEGS SYNDROME
     Route: 062
  12. KELTICAN FORTE [Concomitant]
     Dosage: DAILY DOSE: 1
  13. SIMVABETA [Concomitant]
     Dosage: STRENGTH: 20 MG ; DAILY DOSE:?

REACTIONS (2)
  - DRUG INEFFECTIVE [None]
  - RESTLESS LEGS SYNDROME [None]
